FAERS Safety Report 9168948 (Version 2)
Quarter: 2013Q2

REPORT INFORMATION
  Report Type: Spontaneous
  Country: US (occurrence: None)
  Receive Date: 20130308
  Receipt Date: 20130403
  Transmission Date: 20140414
  Serious: Yes (Other)
  Sender: FDA-Public Use
  Company Number: ADR-2013-00362

PATIENT
  Sex: Male

DRUGS (4)
  1. BACLOFEN [Suspect]
     Indication: PAIN
  2. DILAUDID (HYDROMORPHONE) [Concomitant]
  3. KADIAN [Concomitant]
  4. HYDROMORPHONE [Concomitant]

REACTIONS (11)
  - Treatment noncompliance [None]
  - Anger [None]
  - Diarrhoea [None]
  - Vomiting [None]
  - Hyperhidrosis [None]
  - Drug withdrawal syndrome [None]
  - Incision site complication [None]
  - Scab [None]
  - Economic problem [None]
  - Convulsion [None]
  - Drug administration error [None]
